FAERS Safety Report 24769679 (Version 1)
Quarter: 2024Q4

REPORT INFORMATION
  Report Type: Report from Study
  Country: US (occurrence: US)
  Receive Date: 20241224
  Receipt Date: 20241224
  Transmission Date: 20250115
  Serious: Yes (Other)
  Sender: AUROBINDO
  Company Number: US-AUROBINDO-AUR-APL-2024-062380

PATIENT
  Age: 62 Year
  Sex: Male

DRUGS (4)
  1. LORAZEPAM [Suspect]
     Active Substance: LORAZEPAM
     Indication: Pulmonary oedema
     Dosage: TEST DOSE
     Route: 065
  2. LORAZEPAM [Suspect]
     Active Substance: LORAZEPAM
     Indication: Pneumonitis aspiration
  3. FLUMAZENIL [Suspect]
     Active Substance: FLUMAZENIL
     Indication: Pulmonary oedema
     Dosage: 0.2 MILLIGRAM (TEST DOSE)
     Route: 065
  4. FLUMAZENIL [Suspect]
     Active Substance: FLUMAZENIL
     Indication: Pneumonitis aspiration

REACTIONS (1)
  - Delirium [Unknown]
